FAERS Safety Report 9397019 (Version 1)
Quarter: 2013Q3

REPORT INFORMATION
  Report Type: Spontaneous
  Country: SE (occurrence: SE)
  Receive Date: 20130712
  Receipt Date: 20130712
  Transmission Date: 20140515
  Serious: Yes (Hospitalization)
  Sender: FDA-Public Use
  Company Number: SE-ASTRAZENECA-2013SE50622

PATIENT
  Age: 75 Year
  Sex: Female

DRUGS (5)
  1. CANDESARTAN KRKA [Suspect]
     Route: 048
  2. KALEORID [Interacting]
     Route: 065
  3. SPIRONOLAKTON [Interacting]
     Indication: ESSENTIAL HYPERTENSION
     Route: 065
  4. PRADAXA [Concomitant]
  5. TRIMETOPRIM MEDA [Concomitant]

REACTIONS (2)
  - Drug interaction [Unknown]
  - Hyperkalaemia [Unknown]
